FAERS Safety Report 25666400 (Version 1)
Quarter: 2025Q3

REPORT INFORMATION
  Report Type: Report from Study
  Country: IN (occurrence: IN)
  Receive Date: 20250811
  Receipt Date: 20250811
  Transmission Date: 20251021
  Serious: Yes (Other)
  Sender: DAIICHI
  Company Number: IN-AstraZeneca-CH-00923462A

PATIENT
  Age: 48 Year
  Sex: Female
  Weight: 71 kg

DRUGS (1)
  1. ENHERTU [Suspect]
     Active Substance: FAM-TRASTUZUMAB DERUXTECAN-NXKI
     Indication: Product used for unknown indication
     Dosage: 200 ML, Q3W (ONCE EVERY 3 WK)
     Route: 040
     Dates: start: 20250630

REACTIONS (5)
  - Traumatic lung injury [Unknown]
  - Procedural pain [Unknown]
  - Dyspnoea [Unknown]
  - Fatigue [Unknown]
  - Skin discolouration [Unknown]
